FAERS Safety Report 7777647-8 (Version None)
Quarter: 2011Q3

REPORT INFORMATION
  Report Type: 
  Country: None (occurrence: None)
  Receive Date: 20110926
  Receipt Date: 20110915
  Transmission Date: 20111222
  Serious: Yes (Death, Other)
  Sender: FDA-Public Use
  Company Number: US-BAYER-201041767NA

PATIENT
  Age: 84 Year
  Sex: Female
  Weight: 68 kg

DRUGS (13)
  1. PHENYLEPHRINE HCL [Concomitant]
  2. PROTAMINE [Concomitant]
  3. PEPCID [Concomitant]
  4. BENADRYL [Concomitant]
     Dosage: 50 MG, UNK
  5. PAVULON [Concomitant]
  6. TRASYLOL [Suspect]
     Dosage: 400 ML
     Route: 042
     Dates: start: 20040422
  7. ATIVAN [Concomitant]
  8. MICARDIS [Concomitant]
     Dosage: UNK UNK, QD
  9. MYSOLINE [Concomitant]
     Indication: PARKINSON'S DISEASE
     Dosage: UNK UNK, QD
  10. TRASYLOL [Suspect]
     Indication: CORONARY ARTERY BYPASS
     Dosage: 50 CC/HR, INFUSION
     Route: 042
     Dates: start: 20040420, end: 20040420
  11. TRASYLOL [Suspect]
     Dosage: 200 ML, LOADING DOSE, 50CC/HR INFUSION
     Route: 042
     Dates: start: 20040421, end: 20040421
  12. ACETYLSALICYLIC ACID SRT [Concomitant]
     Dosage: UNK UNK, QD
  13. SYNTHROID [Concomitant]
     Dosage: UNK UNK, QD

REACTIONS (14)
  - CARDIOGENIC SHOCK [None]
  - EMOTIONAL DISTRESS [None]
  - STRESS [None]
  - UNEVALUABLE EVENT [None]
  - DEATH [None]
  - RENAL IMPAIRMENT [None]
  - RENAL INJURY [None]
  - RENAL FAILURE [None]
  - ANXIETY [None]
  - MULTI-ORGAN FAILURE [None]
  - FEAR [None]
  - PAIN [None]
  - MENTAL DISORDER [None]
  - INJURY [None]
